FAERS Safety Report 12507699 (Version 1)
Quarter: 2016Q2

REPORT INFORMATION
  Report Type: Spontaneous
  Country: US (occurrence: None)
  Receive Date: 20160628
  Receipt Date: 20160628
  Transmission Date: 20160815
  Serious: Yes (Hospitalization)
  Sender: FDA-Public Use
  Company Number: None

PATIENT
  Age: 58 Year
  Sex: Male
  Weight: 102.8 kg

DRUGS (6)
  1. PROCHLORPERAZINE. [Concomitant]
     Active Substance: PROCHLORPERAZINE
  2. SENNOSIDES. [Concomitant]
     Active Substance: SENNOSIDES
  3. POLYETHYLENE GLYCOL [Concomitant]
     Active Substance: POLYETHYLENE GLYCOLS
  4. MORPHINE [Concomitant]
     Active Substance: MORPHINE
  5. APIXABAN 5 MG [Suspect]
     Active Substance: APIXABAN
     Indication: PULMONARY EMBOLISM
     Route: 048
     Dates: start: 20160525
  6. ONDANSETRON [Concomitant]
     Active Substance: ONDANSETRON

REACTIONS (5)
  - Polyp [None]
  - Malignant neoplasm progression [None]
  - Benign neoplasm [None]
  - Lung neoplasm malignant [None]
  - Cyst [None]

NARRATIVE: CASE EVENT DATE: 20160626
